FAERS Safety Report 4553902-X (Version None)
Quarter: 2005Q1

REPORT INFORMATION
  Report Type: 
  Country: None (occurrence: None)
  Receive Date: 20050118
  Receipt Date: 20050107
  Transmission Date: 20050727
  Serious: Yes (Other)
  Sender: FDA-Public Use
  Company Number: CA-ABBOTT-05P-028-0285845-00

PATIENT
  Sex: Male

DRUGS (3)
  1. SYNTHROID [Suspect]
     Indication: DRUG EXPOSURE DURING PREGNANCY
  2. CANDESARTAN CILEXETIL [Suspect]
     Indication: DRUG EXPOSURE DURING PREGNANCY
  3. HYDROCHLOROTHIAZIDE [Suspect]
     Indication: DRUG EXPOSURE DURING PREGNANCY

REACTIONS (8)
  - DELAYED FONTANELLE CLOSURE [None]
  - DRUG EXPOSURE DURING PREGNANCY [None]
  - FOETAL DISORDER [None]
  - FONTANELLE BULGING [None]
  - INDUCED LABOUR [None]
  - JAUNDICE NEONATAL [None]
  - KIDNEY ENLARGEMENT [None]
  - ULTRASOUND ANTENATAL SCREEN ABNORMAL [None]
